FAERS Safety Report 8611891-2 (Version None)
Quarter: 2012Q3

REPORT INFORMATION
  Report Type: 
  Country: None (occurrence: None)
  Receive Date: 20120822
  Receipt Date: 20120810
  Transmission Date: 20120928
  Serious: Yes (Hospitalization)
  Sender: FDA-Public Use
  Company Number: US-BRISTOL-MYERS SQUIBB COMPANY-16829665

PATIENT
  Age: 62 Year
  Sex: Male

DRUGS (1)
  1. COUMADIN [Suspect]
     Indication: DEEP VEIN THROMBOSIS
     Route: 048
     Dates: start: 20120704

REACTIONS (3)
  - INTERNATIONAL NORMALISED RATIO INCREASED [None]
  - HYPERTENSION [None]
  - HAEMOPTYSIS [None]
